FAERS Safety Report 6618691-3 (Version None)
Quarter: 2010Q1

REPORT INFORMATION
  Report Type: 
  Country: None (occurrence: None)
  Receive Date: 20100305
  Receipt Date: 20100305
  Transmission Date: 20100710
  Serious: Yes (Hospitalization)
  Sender: FDA-Public Use
  Company Number: None

PATIENT
  Sex: Female
  Weight: 78.9259 kg

DRUGS (3)
  1. HYDROXYCHLOROQUINE SULFATE [Suspect]
  2. HYDROXYCHLOROQUINE SULFATE [Suspect]
     Indication: POLYMYALGIA RHEUMATICA
     Dosage: 400 MG QD PO
     Route: 048
     Dates: start: 20091205, end: 20091221
  3. HYDROXYCHLOROQUINE SULFATE [Suspect]
     Indication: STEROID THERAPY
     Dosage: 400 MG QD PO
     Route: 048
     Dates: start: 20091205, end: 20091221

REACTIONS (1)
  - ACUTE GENERALISED EXANTHEMATOUS PUSTULOSIS [None]
